FAERS Safety Report 25893687 (Version 2)
Quarter: 2025Q4

REPORT INFORMATION
  Report Type: Spontaneous
  Country: EU (occurrence: EU)
  Receive Date: 20251008
  Receipt Date: 20251103
  Transmission Date: 20260117
  Serious: Yes (Hospitalization)
  Sender: CHEPLAPHARM
  Company Number: None

PATIENT
  Age: 42 Year
  Sex: Female

DRUGS (3)
  1. OLANZAPINE [Suspect]
     Active Substance: OLANZAPINE
     Indication: Bipolar disorder
     Dosage: TWICE DAILY?DAILY DOSE: 20 MILLIGRAM
     Route: 048
     Dates: start: 20250901, end: 20250910
  2. OLANZAPINE [Suspect]
     Active Substance: OLANZAPINE
     Indication: Bipolar disorder
     Route: 030
     Dates: start: 20250906, end: 20250906
  3. DIAZEPAM [Suspect]
     Active Substance: DIAZEPAM
     Dosage: DAILY DOSE: 50 MILLIGRAM
     Route: 030
     Dates: start: 20250904

REACTIONS (2)
  - Myalgia [Unknown]
  - Blood creatine phosphokinase increased [Recovered/Resolved]

NARRATIVE: CASE EVENT DATE: 20250908
